FAERS Safety Report 7866396-3 (Version None)
Quarter: 2011Q4

REPORT INFORMATION
  Report Type: 
  Country: None (occurrence: None)
  Receive Date: 20111028
  Receipt Date: 20110610
  Transmission Date: 20120403
  Serious: No
  Sender: FDA-Public Use
  Company Number: US-GLAXOSMITHKLINE-A0931157A

PATIENT
  Age: 61 Year
  Sex: Female

DRUGS (2)
  1. MULTIPLE MEDICATIONS [Concomitant]
  2. ADVAIR DISKUS 100/50 [Suspect]
     Indication: CHRONIC OBSTRUCTIVE PULMONARY DISEASE
     Dosage: 1PUFF TWICE PER DAY
     Route: 055
     Dates: start: 20110608

REACTIONS (7)
  - ERUCTATION [None]
  - RASH [None]
  - HEADACHE [None]
  - DYSGEUSIA [None]
  - EYE IRRITATION [None]
  - FLATULENCE [None]
  - DYSPEPSIA [None]
